FAERS Safety Report 19382849 (Version 1)
Quarter: 2021Q2

REPORT INFORMATION
  Report Type: Spontaneous
  Country: US (occurrence: US)
  Receive Date: 20210607
  Receipt Date: 20210607
  Transmission Date: 20210717
  Serious: Yes (Other)
  Sender: FDA-Public Use
  Company Number: US-MYLANLABS-2021M1032472

PATIENT
  Age: 78 Year
  Sex: Female

DRUGS (4)
  1. WIXELA INHUB [Suspect]
     Active Substance: FLUTICASONE PROPIONATE\SALMETEROL XINAFOATE
     Indication: ASTHMA
     Dosage: UNK, 250/50 MCG
     Route: 055
  2. PREDNISONE. [Concomitant]
     Active Substance: PREDNISONE
     Indication: ASTHMA
     Dosage: UNK
  3. PROAIR HFA [Suspect]
     Active Substance: ALBUTEROL SULFATE
     Indication: ASTHMA
     Dosage: UNK
  4. PREDNISONE. [Concomitant]
     Active Substance: PREDNISONE
     Indication: ARTHRITIS

REACTIONS (9)
  - Dysphonia [Unknown]
  - Depression [Recovered/Resolved]
  - Therapy cessation [Unknown]
  - Drug ineffective [Unknown]
  - Condition aggravated [Unknown]
  - Visual impairment [Unknown]
  - Feeling abnormal [Unknown]
  - Drug abuse [Unknown]
  - Gait inability [Recovered/Resolved]
